FAERS Safety Report 19275475 (Version 1)
Quarter: 2021Q2

REPORT INFORMATION
  Report Type: Spontaneous
  Country: TW (occurrence: TW)
  Receive Date: 20210519
  Receipt Date: 20210519
  Transmission Date: 20210717
  Serious: Yes (Life-Threatening, Hospitalization)
  Sender: FDA-Public Use
  Company Number: TW-MYLANLABS-2021M1029273

PATIENT
  Age: 2 Year
  Sex: Female

DRUGS (2)
  1. ATROPINE. [Suspect]
     Active Substance: ATROPINE
     Indication: BRADYCARDIA
     Dosage: UNK
     Route: 042
  2. EPINEPHRINE. [Suspect]
     Active Substance: EPINEPHRINE
     Indication: BRADYCARDIA
     Dosage: UNK
     Route: 042

REACTIONS (1)
  - Drug ineffective [Unknown]
